FAERS Safety Report 7003539-8 (Version None)
Quarter: 2010Q3

REPORT INFORMATION
  Report Type: 
  Country: None (occurrence: None)
  Receive Date: 20100916
  Receipt Date: 20100907
  Transmission Date: 20110219
  Serious: Yes (Hospitalization, Disabling, Other)
  Sender: FDA-Public Use
  Company Number: 2010JP005304

PATIENT
  Age: 44 Year
  Sex: Male

DRUGS (46)
  1. TACROLIMUS [Suspect]
     Indication: PANCREAS TRANSPLANT
     Dosage: SEE IMAGE
     Route: 048
     Dates: start: 20060325, end: 20060325
  2. TACROLIMUS [Suspect]
     Indication: PANCREAS TRANSPLANT
     Dosage: SEE IMAGE
     Route: 048
     Dates: start: 20060326, end: 20060327
  3. TACROLIMUS [Suspect]
     Indication: PANCREAS TRANSPLANT
     Dosage: SEE IMAGE
     Route: 048
     Dates: start: 20060328, end: 20060328
  4. TACROLIMUS [Suspect]
     Indication: PANCREAS TRANSPLANT
     Dosage: SEE IMAGE
     Route: 048
     Dates: start: 20060329, end: 20060424
  5. TACROLIMUS [Suspect]
     Indication: PANCREAS TRANSPLANT
     Dosage: SEE IMAGE
     Route: 048
     Dates: start: 20060425, end: 20060502
  6. TACROLIMUS [Suspect]
     Indication: PANCREAS TRANSPLANT
     Dosage: SEE IMAGE
     Route: 048
     Dates: start: 20060503, end: 20060508
  7. TACROLIMUS [Suspect]
     Indication: PANCREAS TRANSPLANT
     Dosage: SEE IMAGE
     Route: 048
     Dates: end: 20070308
  8. TACROLIMUS [Suspect]
     Indication: PANCREAS TRANSPLANT
     Dosage: SEE IMAGE
     Route: 048
     Dates: start: 20070309, end: 20070313
  9. TACROLIMUS [Suspect]
     Indication: PANCREAS TRANSPLANT
     Dosage: SEE IMAGE
     Route: 048
     Dates: start: 20070314, end: 20070314
  10. TACROLIMUS [Suspect]
     Indication: PANCREAS TRANSPLANT
     Dosage: SEE IMAGE
     Route: 048
     Dates: start: 20070315, end: 20070318
  11. TACROLIMUS [Suspect]
     Indication: PANCREAS TRANSPLANT
     Dosage: SEE IMAGE
     Route: 048
     Dates: start: 20060509
  12. TACROLIMUS [Suspect]
     Indication: PANCREAS TRANSPLANT
     Dosage: SEE IMAGE
     Route: 048
     Dates: start: 20070319
  13. CELLCEPT [Suspect]
     Indication: PANCREAS TRANSPLANT
     Dosage: SEE IMAGE
     Route: 048
     Dates: start: 20060329, end: 20060424
  14. CELLCEPT [Suspect]
     Indication: PANCREAS TRANSPLANT
     Dosage: SEE IMAGE
     Route: 048
     Dates: end: 20070308
  15. CELLCEPT [Suspect]
     Indication: PANCREAS TRANSPLANT
     Dosage: SEE IMAGE
     Route: 048
     Dates: start: 20060101
  16. CELLCEPT [Suspect]
     Indication: PANCREAS TRANSPLANT
     Dosage: SEE IMAGE
     Route: 048
     Dates: start: 20060326
  17. CELLCEPT [Suspect]
     Indication: PANCREAS TRANSPLANT
     Dosage: SEE IMAGE
     Route: 048
     Dates: start: 20070309
  18. METHYLPREDNISOLONE [Concomitant]
  19. SIMULECT [Concomitant]
  20. NOVOLOG [Concomitant]
  21. HUMULIN R [Concomitant]
  22. FLUMARIN (MORNIFLUMATE) [Concomitant]
  23. RABEPRAZOLE SODIUM [Concomitant]
  24. LEVOTHYROXINE SODIUM [Concomitant]
  25. ACTOS [Concomitant]
  26. CARVEDILOL [Concomitant]
  27. FOIPAN (CAMOSTAT MESILATE) [Concomitant]
  28. NORVASC [Concomitant]
  29. TICLOPIDINE HCL [Concomitant]
  30. FOY (GABEXATE MESILATE) [Concomitant]
  31. GANCICLOVIR [Concomitant]
  32. GANCICLOVIR SODIUM [Concomitant]
  33. ALLOPURINOL [Concomitant]
  34. LOSARTAN POTASSIUM [Concomitant]
  35. HANGE-SHASHIN-TO [Concomitant]
  36. LOPERAMIDE HCL [Concomitant]
  37. FERROMIA (FERRIC SODIUM CITRATE) [Concomitant]
  38. PURSENNID (SENNOSIDE A+B) [Concomitant]
  39. XALATAN [Concomitant]
  40. TRUSOPT [Concomitant]
  41. TIMOPTOL-XE (TIMOLOL MALEATE) [Concomitant]
  42. SANPILO (PILOCARPINE HYDROCHLORIDE) [Concomitant]
  43. GASCON (DIMETICONE) [Concomitant]
  44. ISODINE (POVIDONE-IODINE) [Concomitant]
  45. CEFMETAZOLE (CEFMETAZOLE) [Concomitant]
  46. FLOMOXEF (FLOMOXEF) [Concomitant]

REACTIONS (6)
  - AUTOIMMUNE PANCREATITIS [None]
  - DIARRHOEA [None]
  - FOLLICULITIS [None]
  - INCISIONAL HERNIA [None]
  - PANCREATITIS [None]
  - TRANSPLANT FAILURE [None]
